FAERS Safety Report 7802748-5 (Version None)
Quarter: 2011Q4

REPORT INFORMATION
  Report Type: 
  Country: None (occurrence: None)
  Receive Date: 20111007
  Receipt Date: 20110927
  Transmission Date: 20120403
  Serious: Yes (Life-Threatening, Hospitalization)
  Sender: FDA-Public Use
  Company Number: PHHY2011GB87338

PATIENT
  Age: 31 Year
  Sex: Female
  Weight: 63.5 kg

DRUGS (4)
  1. CODEINE PHOSPHATE [Suspect]
     Dates: start: 20110506
  2. AMITRIPTYLINE HCL [Suspect]
     Dates: start: 20110506
  3. DIAZEPAM [Concomitant]
     Dates: start: 20110506
  4. ACETAMINOPHEN [Concomitant]
     Dates: start: 20110506

REACTIONS (5)
  - ABASIA [None]
  - INCOHERENT [None]
  - PAIN [None]
  - SEROTONIN SYNDROME [None]
  - NEUROLEPTIC MALIGNANT SYNDROME [None]
